FAERS Safety Report 7707132-0 (Version None)
Quarter: 2011Q3

REPORT INFORMATION
  Report Type: 
  Country: None (occurrence: None)
  Receive Date: 20110824
  Receipt Date: 20110609
  Transmission Date: 20111222
  Serious: No
  Sender: FDA-Public Use
  Company Number: US-BAYER-2011-050388

PATIENT
  Sex: Female

DRUGS (4)
  1. NAUSEA MEDICATION [Concomitant]
     Indication: NAUSEA
  2. PAIN MEDICATION [Concomitant]
     Indication: ANALGESIC THERAPY
  3. MIRENA [Suspect]
     Dosage: 20 MCG/24HR, CONT
     Route: 015
     Dates: start: 20110408
  4. SLEEPING PILLS [Concomitant]
     Indication: SLEEP DISORDER

REACTIONS (9)
  - POLYMENORRHOEA [None]
  - ACNE CYSTIC [None]
  - DEPRESSION [None]
  - MUSCLE SPASMS [None]
  - NAUSEA [None]
  - BREAST PAIN [None]
  - ONYCHOMALACIA [None]
  - DIZZINESS [None]
  - ALOPECIA [None]
